FAERS Safety Report 18887955 (Version 3)
Quarter: 2021Q2

REPORT INFORMATION
  Report Type: Report from Study
  Country: MY (occurrence: MY)
  Receive Date: 20210212
  Receipt Date: 20210525
  Transmission Date: 20210717
  Serious: Yes (Death, Other)
  Sender: FDA-Public Use
  Company Number: MY-SEATTLE GENETICS-2021SGN00731

PATIENT
  Age: 34 Year
  Sex: Female

DRUGS (1)
  1. BRENTUXIMAB VEDOTIN [Suspect]
     Active Substance: BRENTUXIMAB VEDOTIN
     Indication: HODGKIN^S DISEASE
     Dosage: 100 MILLIGRAM
     Route: 042
     Dates: start: 20200422, end: 20201016

REACTIONS (6)
  - Acute graft versus host disease [Unknown]
  - Hodgkin^s disease recurrent [Unknown]
  - Cytomegalovirus infection [Unknown]
  - Staphylococcal bacteraemia [Fatal]
  - Haemolytic anaemia [Fatal]
  - Acute hepatic failure [Fatal]

NARRATIVE: CASE EVENT DATE: 20210108
